FAERS Safety Report 23635311 (Version 1)
Quarter: 2024Q1

REPORT INFORMATION
  Report Type: Spontaneous
  Country: DE (occurrence: DE)
  Receive Date: 20240315
  Receipt Date: 20240315
  Transmission Date: 20240409
  Serious: Yes (Death, Hospitalization)
  Sender: FDA-Public Use
  Company Number: DE-BAYER-2024A036867

PATIENT
  Sex: Female

DRUGS (1)
  1. VERICIGUAT HYDROCHLORIDE [Suspect]
     Active Substance: VERICIGUAT HYDROCHLORIDE
     Dosage: 10 MILLIGRAM
     Route: 048

REACTIONS (3)
  - Cardiac failure [Fatal]
  - N-terminal prohormone brain natriuretic peptide increased [Fatal]
  - Proteinuria [Unknown]
